FAERS Safety Report 19963322 (Version 2)
Quarter: 2021Q4

REPORT INFORMATION
  Report Type: Spontaneous
  Country: JP (occurrence: JP)
  Receive Date: 20211018
  Receipt Date: 20211202
  Transmission Date: 20220303
  Serious: Yes (Death, Other)
  Sender: FDA-Public Use
  Company Number: JP-ASTELLAS-2021JP019695

PATIENT
  Age: 70 Year
  Sex: Male

DRUGS (1)
  1. XOSPATA [Suspect]
     Active Substance: GILTERITINIB
     Indication: Acute myeloid leukaemia
     Dosage: 120 MG/DAY, UNKNOWN FREQ.
     Route: 048

REACTIONS (3)
  - Bronchopulmonary aspergillosis [Fatal]
  - Platelet-derived growth factor receptor gene mutation [Unknown]
  - Febrile neutropenia [Unknown]
